FAERS Safety Report 9003701 (Version 1)
Quarter: 2013Q1

REPORT INFORMATION
  Report Type: Spontaneous
  Country: US (occurrence: US)
  Receive Date: 20130108
  Receipt Date: 20130108
  Transmission Date: 20140127
  Serious: No
  Sender: FDA-Public Use
  Company Number: US-GLAXOSMITHKLINE-A0963520A

PATIENT
  Age: 57 Year
  Sex: Male

DRUGS (3)
  1. LOVAZA [Suspect]
     Indication: BLOOD TRIGLYCERIDES INCREASED
     Dosage: 4G PER DAY
     Route: 048
     Dates: start: 2007
  2. LOPID [Concomitant]
  3. NORVASC [Concomitant]

REACTIONS (6)
  - Vomiting [Not Recovered/Not Resolved]
  - Eructation [Unknown]
  - Nausea [Unknown]
  - Nausea [Unknown]
  - Chills [Unknown]
  - Product quality issue [Unknown]
